FAERS Safety Report 25044873 (Version 1)
Quarter: 2025Q1

REPORT INFORMATION
  Report Type: Spontaneous
  Country: US (occurrence: US)
  Receive Date: 20250306
  Receipt Date: 20250306
  Transmission Date: 20250409
  Serious: Yes (Life-Threatening, Hospitalization, Other)
  Sender: HIKMA
  Company Number: US-MLMSERVICE-20250217-PI413163-00203-1

PATIENT
  Age: 6 Decade
  Sex: Male

DRUGS (5)
  1. DOXYCYCLINE [Concomitant]
     Active Substance: DOXYCYCLINE
     Indication: Pneumonia
     Route: 065
  2. METOPROLOL SUCCINATE [Concomitant]
     Active Substance: METOPROLOL SUCCINATE
     Indication: Blood pressure management
     Dosage: 25 MILLIGRAM, Q12H
     Route: 065
  3. LISINOPRIL [Interacting]
     Active Substance: LISINOPRIL
     Indication: Blood pressure management
     Dosage: 20 MILLIGRAM, QD
     Route: 065
  4. TIZANIDINE [Interacting]
     Active Substance: TIZANIDINE
     Indication: Back pain
     Dosage: 8 MILLIGRAM, Q8H
     Route: 065
  5. TIZANIDINE [Interacting]
     Active Substance: TIZANIDINE
     Indication: Muscle spasms

REACTIONS (2)
  - Hypotension [Recovered/Resolved]
  - Drug interaction [Recovered/Resolved]
